FAERS Safety Report 7960797-0 (Version None)
Quarter: 2011Q4

REPORT INFORMATION
  Report Type: 
  Country: None (occurrence: None)
  Receive Date: 20111207
  Receipt Date: 20111201
  Transmission Date: 20120403
  Serious: Yes (Hospitalization)
  Sender: FDA-Public Use
  Company Number: US-BIOGENIDEC-2011BI011553

PATIENT
  Age: 45 Year
  Sex: Female

DRUGS (15)
  1. PRILOSEC [Concomitant]
     Route: 048
  2. TYSABRI [Suspect]
     Indication: MULTIPLE SCLEROSIS
     Route: 042
     Dates: start: 20090225, end: 20110201
  3. ACETAMINOPHEN [Concomitant]
     Indication: BODY TEMPERATURE
  4. BACLOFEN [Concomitant]
     Route: 048
  5. LORTAB [Concomitant]
  6. OS-CAL PLUS D [Concomitant]
     Route: 048
  7. DRISDOL [Concomitant]
     Dosage: DOSE UNIT:50000
     Route: 048
  8. BEN GAY [Concomitant]
     Route: 062
  9. MOTRIN [Concomitant]
     Indication: PAIN
     Route: 048
  10. LOPRESSOR [Concomitant]
     Route: 048
  11. PETROLEUM OINTMENT [Concomitant]
     Route: 061
  12. TYSABRI [Suspect]
     Route: 042
     Dates: start: 20110401
  13. ACETAMINOPHEN [Concomitant]
     Indication: PAIN
  14. SILVADENE [Concomitant]
     Route: 061
  15. MULTI-VITAMIN [Concomitant]
     Route: 048

REACTIONS (4)
  - MULTIPLE SCLEROSIS RELAPSE [None]
  - ORAL CANDIDIASIS [None]
  - CHEST PAIN [None]
  - BRONCHITIS [None]
